FAERS Safety Report 7291372-1 (Version None)
Quarter: 2011Q1

REPORT INFORMATION
  Report Type: 
  Country: None (occurrence: None)
  Receive Date: 20110214
  Receipt Date: 20110202
  Transmission Date: 20110831
  Serious: Yes (Hospitalization)
  Sender: FDA-Public Use
  Company Number: B0692701A

PATIENT
  Sex: Male

DRUGS (4)
  1. AMOXICILLIN [Suspect]
     Route: 064
  2. ERYTHROMYCIN [Suspect]
     Route: 064
  3. PARACETAMOL [Suspect]
     Route: 064
  4. ACETAMINOPHEN W/ CODEINE [Suspect]
     Route: 064

REACTIONS (3)
  - NEONATAL DISORDER [None]
  - DRUG EXPOSURE DURING PREGNANCY [None]
  - MALAISE [None]
